FAERS Safety Report 11431310 (Version 1)
Quarter: 2015Q3

REPORT INFORMATION
  Report Type: Spontaneous
  Country: PL (occurrence: PL)
  Receive Date: 20150828
  Receipt Date: 20150828
  Transmission Date: 20151125
  Serious: Yes (Other)
  Sender: FDA-Public Use
  Company Number: PL-TEVA-588765ISR

PATIENT
  Age: 59 Year
  Sex: Female
  Weight: 71 kg

DRUGS (3)
  1. DACARBAZINE. [Suspect]
     Active Substance: DACARBAZINE
     Indication: MALIGNANT NEOPLASM OF EYE
     Dosage: DOSE: 1432; DOSE UNIT: UNSPECIFIED
     Route: 042
     Dates: start: 20150427, end: 20150430
  2. VINBLASTINE [Suspect]
     Active Substance: VINBLASTINE
     Indication: MALIGNANT NEOPLASM OF EYE
     Dosage: DOSE: 2.14; DOSE UNIT: UNSPECIFIED
     Route: 042
     Dates: start: 20150427, end: 20150430
  3. CISPLATIN. [Suspect]
     Active Substance: CISPLATIN
     Indication: MALIGNANT NEOPLASM OF EYE
     Dosage: DOSE: 35.8; DOSE UNIT: UNSPECIFIED
     Route: 042
     Dates: start: 20150427, end: 20150430

REACTIONS (1)
  - Neutropenia [Recovering/Resolving]

NARRATIVE: CASE EVENT DATE: 20150518
